FAERS Safety Report 4551699-0 (Version None)
Quarter: 2005Q1

REPORT INFORMATION
  Report Type: 
  Country: None (occurrence: None)
  Receive Date: 20050112
  Receipt Date: 20041230
  Transmission Date: 20050727
  Serious: Yes (Hospitalization)
  Sender: FDA-Public Use
  Company Number: 2005001826

PATIENT
  Age: 12 Month
  Sex: Male
  Weight: 9.2 kg

DRUGS (10)
  1. ACETAMINOPHEN [Suspect]
     Indication: UPPER RESPIRATORY TRACT INFECTION
     Dosage: 125 MG Q6H ON DAYS 1 AND 2, ORAL
     Route: 048
     Dates: start: 20030801
  2. ACETAMINOPHEN [Suspect]
     Indication: UPPER RESPIRATORY TRACT INFECTION
     Dosage: 250 MG/DAY ON DAYS 1-3, RECTAL
     Route: 054
     Dates: start: 20030801
  3. DIMENHYDRINATE [Suspect]
     Indication: VOMITING
     Dosage: 7.5 MG, 2 DOSES DAY 3
     Dates: start: 20030801
  4. CEFACLOR [Suspect]
     Indication: UPPER RESPIRATORY TRACT INFECTION
     Dosage: 62.5 MG Q8H, 6 DOSES FROM DAY 1-2
     Dates: start: 20030801
  5. CHLORPHENAMINE (CHLORPHENAMINE) [Suspect]
     Indication: UPPER RESPIRATORY TRACT INFECTION
     Dosage: 1.5 MG Q6H, 4 DOSES DAY 1 AND DAY 2
     Dates: start: 20030801
  6. PHARMATON (CAFFEINE, DISODIUM METHANEARSONATE, NICOTINAMIDE, PYRIDOXIN [Suspect]
     Indication: UPPER RESPIRATORY TRACT INFECTION
     Dosage: 5 ML DAILY, 2 DOSES DAY 1
     Dates: start: 20030801
  7. KAOLIN (KAOLIN) [Suspect]
     Indication: DIARRHOEA
     Dosage: 5 ML, 2 DOSES DAY 3
     Dates: start: 20030801
  8. CEFTIBUTEN (CEFTIBUTEN) [Suspect]
     Indication: DIARRHOEA
     Dosage: 125 MG, 1 DOSE DAY 3
     Dates: start: 20030801
  9. DOMPERIDONE (DOMPERIDONE) [Suspect]
     Indication: DIARRHOEA
     Dosage: 5 MG, 1 DOSE DAY 3
     Dates: start: 20030801
  10. SACCHAROMYCES BOULARDII (SACCHAROMYCES BOULARDII) [Suspect]
     Indication: DIARRHOEA
     Dosage: 250 MG/DAY, 1 DOSE ON DAY 3
     Dates: start: 20030801

REACTIONS (19)
  - BETA 2 MICROGLOBULIN URINE INCREASED [None]
  - DEHYDRATION [None]
  - DISSEMINATED INTRAVASCULAR COAGULATION [None]
  - EJECTION FRACTION DECREASED [None]
  - GASTROENTERITIS [None]
  - HEPATOTOXICITY [None]
  - HYPOGLYCAEMIA [None]
  - ILEUS PARALYTIC [None]
  - METABOLIC ACIDOSIS [None]
  - PRESCRIBED OVERDOSE [None]
  - PROTEINURIA [None]
  - RENAL ATROPHY [None]
  - RENAL FAILURE [None]
  - RENAL TUBULAR DISORDER [None]
  - RHABDOMYOLYSIS [None]
  - SEPSIS [None]
  - SHOCK [None]
  - URINARY TRACT INFECTION PSEUDOMONAL [None]
  - VENTRICULAR DYSFUNCTION [None]
